FAERS Safety Report 19918721 (Version 1)
Quarter: 2021Q4

REPORT INFORMATION
  Report Type: Spontaneous
  Country: US (occurrence: US)
  Receive Date: 20211005
  Receipt Date: 20211005
  Transmission Date: 20220304
  Serious: Yes (Hospitalization)
  Sender: FDA-Public Use
  Company Number: US-MYLANLABS-2021M1068644

PATIENT
  Age: 27 Year
  Sex: Female

DRUGS (8)
  1. DEXMEDETOMIDINE [Suspect]
     Active Substance: DEXMEDETOMIDINE
     Indication: Sedative therapy
     Dosage: 1 MILLIGRAM/KILOGRAM, QH
     Route: 065
  2. NOREPINEPHRINE [Suspect]
     Active Substance: NOREPINEPHRINE
     Indication: Haemodynamic instability
     Dosage: UNK
     Route: 065
  3. VECURONIUM [Suspect]
     Active Substance: VECURONIUM BROMIDE
     Indication: Respiratory failure
     Dosage: UNK/ INFUSION
  4. VECURONIUM [Suspect]
     Active Substance: VECURONIUM BROMIDE
     Indication: Neuromuscular blockade
  5. HYDROMORPHONE [Suspect]
     Active Substance: HYDROMORPHONE
     Indication: Analgesic therapy
     Dosage: 2 MILLIGRAM, QH
     Route: 065
  6. MILRINONE [Suspect]
     Active Substance: MILRINONE
     Indication: Haemodynamic instability
     Dosage: UNK
     Route: 065
  7. NITRIC OXIDE [Suspect]
     Active Substance: NITRIC OXIDE
     Indication: Haemodynamic instability
     Dosage: UNK
  8. SUGAMMADEX [Concomitant]
     Active Substance: SUGAMMADEX
     Indication: Neuromuscular blockade reversal
     Dosage: 16 MILLIGRAM/KILOGRAM
     Route: 065

REACTIONS (1)
  - Drug ineffective [Unknown]
